FAERS Safety Report 5286451-4 (Version None)
Quarter: 2007Q2

REPORT INFORMATION
  Report Type: 
  Country: None (occurrence: None)
  Receive Date: 20070404
  Receipt Date: 20070323
  Transmission Date: 20071010
  Serious: Yes (Death)
  Sender: FDA-Public Use
  Company Number: US-JNJFOC-20061203673

PATIENT
  Sex: Female

DRUGS (12)
  1. RAZADYNE [Suspect]
     Indication: DRUG USE FOR UNKNOWN INDICATION
     Route: 048
  2. RISPERDAL [Suspect]
     Indication: DRUG USE FOR UNKNOWN INDICATION
     Route: 048
  3. REMERON [Concomitant]
  4. MILK OF MAGNESIA [Concomitant]
  5. ACETAMINOPHEN [Concomitant]
  6. ADVAIR DISKUS 100/50 [Concomitant]
     Route: 055
  7. LEXAPRO [Concomitant]
  8. NAMENDA [Concomitant]
  9. VERAPAMIL HYDROCHLORIDE [Concomitant]
  10. OMEPRAZOLE [Concomitant]
  11. DOCUSATE CALCIUM [Concomitant]
  12. NAPROXEN [Concomitant]

REACTIONS (2)
  - LUNG CANCER METASTATIC [None]
  - METASTASES TO CENTRAL NERVOUS SYSTEM [None]
